FAERS Safety Report 20008391 (Version 1)
Quarter: 2021Q4

REPORT INFORMATION
  Report Type: Spontaneous
  Country: NL (occurrence: NL)
  Receive Date: 20211029
  Receipt Date: 20211029
  Transmission Date: 20220303
  Serious: Yes (Hospitalization, Other)
  Sender: FDA-Public Use
  Company Number: NL-TWI PHARMACEUTICAL, INC-2021SCTW000062

PATIENT

DRUGS (2)
  1. NIFEDIPINE [Suspect]
     Active Substance: NIFEDIPINE
     Indication: Product used for unknown indication
     Dosage: 360 MG
     Route: 065
  2. LABETALOL [Suspect]
     Active Substance: LABETALOL\LABETALOL HYDROCHLORIDE
     Indication: Product used for unknown indication
     Dosage: 3200 MG
     Route: 065

REACTIONS (5)
  - Mental status changes [Recovering/Resolving]
  - Renal impairment [Recovering/Resolving]
  - Hypotension [Unknown]
  - Bradycardia [Unknown]
  - Accidental overdose [Unknown]
